FAERS Safety Report 22600627 (Version 1)
Quarter: 2023Q2

REPORT INFORMATION
  Report Type: Spontaneous
  Country: US (occurrence: None)
  Receive Date: 20230613
  Receipt Date: 20230613
  Transmission Date: 20230721
  Serious: Yes (Other)
  Sender: FDA-Public Use
  Company Number: None

PATIENT
  Age: 68 Year
  Sex: Female
  Weight: 63 kg

DRUGS (3)
  1. MOXIFLOXACIN [Suspect]
     Active Substance: MOXIFLOXACIN
     Indication: Corneal abrasion
     Dosage: OTHER QUANTITY : 1 DROP(S);?FREQUENCY : 3 TIMES A DAY;?
     Route: 047
     Dates: start: 20230609, end: 20230610
  2. ERYTHROMYCIN [Concomitant]
     Active Substance: ERYTHROMYCIN
  3. TOBRAMYCIN [Concomitant]
     Active Substance: TOBRAMYCIN

REACTIONS (7)
  - Instillation site irritation [None]
  - Instillation site pain [None]
  - Instillation site erythema [None]
  - Instillation site swelling [None]
  - Lacrimation increased [None]
  - Therapy cessation [None]
  - Visual impairment [None]

NARRATIVE: CASE EVENT DATE: 20230609
